FAERS Safety Report 24315589 (Version 2)
Quarter: 2025Q1

REPORT INFORMATION
  Report Type: Spontaneous
  Country: US (occurrence: US)
  Receive Date: 20240913
  Receipt Date: 20250113
  Transmission Date: 20250409
  Serious: Yes (Other)
  Sender: BRISTOL-MYERS SQUIBB COMPANY
  Company Number: US-BRISTOL-MYERS SQUIBB COMPANY-2024-145715

PATIENT
  Age: 79 Year
  Sex: Female
  Weight: 63.05 kg

DRUGS (3)
  1. REVLIMID [Suspect]
     Active Substance: LENALIDOMIDE
     Indication: Plasma cell myeloma
     Dosage: FREQUENCY: ONCE DAILY EVERY OTHER DAY
     Route: 048
     Dates: start: 202409
  2. REVLIMID [Suspect]
     Active Substance: LENALIDOMIDE
     Indication: Malignant lymphoid neoplasm
  3. REVLIMID [Suspect]
     Active Substance: LENALIDOMIDE
     Indication: Haematopoietic neoplasm

REACTIONS (4)
  - Blood glucose increased [Recovered/Resolved]
  - Dyspnoea [Not Recovered/Not Resolved]
  - Dry skin [Not Recovered/Not Resolved]
  - Skin wound [Not Recovered/Not Resolved]
